FAERS Safety Report 8255145-5 (Version None)
Quarter: 2012Q1

REPORT INFORMATION
  Report Type: 
  Country: None (occurrence: None)
  Receive Date: 20120322
  Receipt Date: 20120206
  Transmission Date: 20120608
  Serious: Yes (Hospitalization)
  Sender: FDA-Public Use
  Company Number: UTC-015301

PATIENT
  Age: 62 Year
  Sex: Male
  Weight: 73.64 kg

DRUGS (1)
  1. TYVASO [Suspect]
     Indication: PULMONARY ARTERIAL HYPERTENSION
     Dosage: 18 TO 54 MICROGRAMS (4 IN 1 D), INHALATION
     Route: 055
     Dates: start: 20100722

REACTIONS (3)
  - TREATMENT NONCOMPLIANCE [None]
  - PULMONARY EMBOLISM [None]
  - LETHARGY [None]
